FAERS Safety Report 8850307 (Version 2)
Quarter: 2012Q4

REPORT INFORMATION
  Report Type: 
  Country: US (occurrence: US)
  Receive Date: 20121019
  Receipt Date: 20121227
  Transmission Date: 20130627
  Serious: No
  Sender: FDA-Public Use
  Company Number: US-ASTRAZENECA-2012SE79077

PATIENT
  Age: 56 Year
  Sex: Male

DRUGS (2)
  1. RHINOCORT AQUA [Suspect]
     Route: 045
  2. NEXIUM [Suspect]
     Route: 048

REACTIONS (2)
  - Malaise [Recovered/Resolved]
  - Intentional drug misuse [Recovered/Resolved]
